FAERS Safety Report 21566652 (Version 2)
Quarter: 2022Q4

REPORT INFORMATION
  Report Type: Spontaneous
  Country: BR (occurrence: BR)
  Receive Date: 20221108
  Receipt Date: 20221117
  Transmission Date: 20230113
  Serious: Yes (Other)
  Sender: FDA-Public Use
  Company Number: BR-BAYER-2022A155334

PATIENT
  Age: 25 Year
  Sex: Male
  Weight: 88 kg

DRUGS (4)
  1. GADOBUTROL [Suspect]
     Active Substance: GADOBUTROL
     Indication: Magnetic resonance imaging head
     Dosage: 5 ML, ONCE
     Route: 042
     Dates: start: 20221023, end: 20221023
  2. METAMIZOLE SODIUM [Concomitant]
     Active Substance: METAMIZOLE SODIUM
     Indication: Craniocerebral injury
     Dates: start: 20221023
  3. TEFLAN [Concomitant]
     Indication: Craniocerebral injury
     Dosage: UNK
     Dates: start: 20221023
  4. LOSEC [Concomitant]
     Active Substance: OMEPRAZOLE
     Indication: Craniocerebral injury
     Dosage: UNK
     Dates: start: 20221023

REACTIONS (1)
  - Erythema [Recovered/Resolved]

NARRATIVE: CASE EVENT DATE: 20221023
